FAERS Safety Report 8799630 (Version 1)
Quarter: 2012Q4

REPORT INFORMATION
  Report Type: Spontaneous
  Country: US (occurrence: None)
  Receive Date: 20120918
  Receipt Date: 20120918
  Transmission Date: 20130627
  Serious: No
  Sender: FDA-Public Use
  Company Number: None

PATIENT
  Age: 65 Year
  Sex: Male

DRUGS (7)
  1. REVLIMID [Suspect]
     Indication: MULTIPLE MYELOMA
     Dosage: 25 mg daily x21d/28d
     Route: 048
     Dates: start: 20120825, end: 20120907
  2. SIMVASTATIN [Concomitant]
  3. FLUOXETINE [Concomitant]
  4. GLIPIZIDE [Concomitant]
  5. LORAZEPAM [Concomitant]
  6. NORTRIPTYLINE [Concomitant]
  7. ACYCLOVIR [Concomitant]

REACTIONS (8)
  - Auricular swelling [None]
  - Swelling face [None]
  - Flushing [None]
  - Pruritus [None]
  - Rash macular [None]
  - Muscle spasms [None]
  - Abdominal pain [None]
  - Refusal of treatment by patient [None]
